FAERS Safety Report 21859532 (Version 1)
Quarter: 2023Q1

REPORT INFORMATION
  Report Type: Other
  Country: CN (occurrence: None)
  Receive Date: 20230113
  Receipt Date: 20230113
  Transmission Date: 20230417
  Serious: Yes (Other)
  Sender: FDA-Public Use
  Company Number: CN-ROCHE-3261161

PATIENT
  Age: 63 Year
  Sex: Female

DRUGS (12)
  1. BEVACIZUMAB [Suspect]
     Active Substance: BEVACIZUMAB
     Indication: Ovarian cancer stage III
     Dosage: 6 CYCLES
     Route: 065
     Dates: start: 202004
  2. BEVACIZUMAB [Suspect]
     Active Substance: BEVACIZUMAB
     Dosage: 2 CYCLES
     Route: 065
     Dates: start: 202009, end: 202012
  3. BEVACIZUMAB [Suspect]
     Active Substance: BEVACIZUMAB
     Route: 065
     Dates: start: 202103
  4. PACLITAXEL [Suspect]
     Active Substance: PACLITAXEL
     Indication: Ovarian cancer stage III
     Route: 065
     Dates: start: 201510, end: 201603
  5. PACLITAXEL [Suspect]
     Active Substance: PACLITAXEL
     Route: 065
     Dates: start: 201901, end: 201904
  6. PACLITAXEL [Suspect]
     Active Substance: PACLITAXEL
     Route: 065
     Dates: start: 202101
  7. CARBOPLATIN [Suspect]
     Active Substance: CARBOPLATIN
     Indication: Ovarian cancer stage III
     Route: 065
     Dates: start: 201901, end: 201904
  8. CARBOPLATIN [Suspect]
     Active Substance: CARBOPLATIN
     Route: 065
     Dates: start: 201912, end: 202010
  9. PACLITAXEL [Suspect]
     Active Substance: PACLITAXEL
     Indication: Ovarian cancer stage III
     Route: 065
     Dates: start: 201912, end: 202010
  10. DOXORUBICIN HYDROCHLORIDE [Concomitant]
     Active Substance: DOXORUBICIN HYDROCHLORIDE
     Indication: Ovarian cancer stage III
     Dates: start: 202012
  11. GEMCITABINE [Concomitant]
     Active Substance: GEMCITABINE
     Indication: Ovarian cancer stage III
     Dates: start: 202103
  12. OLAPARIB [Concomitant]
     Active Substance: OLAPARIB
     Indication: Ovarian cancer stage III

REACTIONS (1)
  - Myelosuppression [Unknown]
